FAERS Safety Report 9729223 (Version 1)
Quarter: 2013Q4

REPORT INFORMATION
  Report Type: Spontaneous
  Country: US (occurrence: None)
  Receive Date: 20131203
  Receipt Date: 20131203
  Transmission Date: 20140711
  Serious: Yes (Hospitalization)
  Sender: FDA-Public Use
  Company Number: None

PATIENT
  Age: 63 Year
  Sex: Male
  Weight: 113 kg

DRUGS (2)
  1. DAPTOMYCIN [Suspect]
     Indication: INFECTION
     Dosage: 900 MG, OTHER, IV
     Route: 042
     Dates: start: 20130404, end: 20130717
  2. ATORVASTATIN [Suspect]
     Dosage: 10 MG, EVERY DAY, PO
     Route: 048

REACTIONS (1)
  - Rhabdomyolysis [None]
